FAERS Safety Report 23430837 (Version 3)
Quarter: 2024Q1

REPORT INFORMATION
  Report Type: Report from Study
  Country: DE (occurrence: DE)
  Receive Date: 20240123
  Receipt Date: 20240205
  Transmission Date: 20240410
  Serious: Yes (Hospitalization, Other)
  Sender: FDA-Public Use
  Company Number: DE-SA-SAC20230609001148

PATIENT
  Age: 55 Year
  Sex: Male
  Weight: 81 kg

DRUGS (56)
  1. CARFILZOMIB [Suspect]
     Active Substance: CARFILZOMIB
     Indication: Plasma cell myeloma refractory
     Dosage: 39 MG, BID
     Route: 065
     Dates: start: 20221227, end: 20221228
  2. CARFILZOMIB [Suspect]
     Active Substance: CARFILZOMIB
     Dosage: 82 MILLIGRAM, 4TIMES 8,9,15,16
     Route: 065
     Dates: start: 20230103, end: 20230112
  3. CARFILZOMIB [Suspect]
     Active Substance: CARFILZOMIB
     Dosage: 110 MILLIGRAM, 6 TIMES 1,2,8,9,15,16
     Route: 065
     Dates: start: 20230124, end: 20230208
  4. CARFILZOMIB [Suspect]
     Active Substance: CARFILZOMIB
     Dosage: 110 MILLIGRAM, 6 TIMES 1,2,8,9,15,16
     Route: 065
     Dates: start: 20230221, end: 20230308
  5. CARFILZOMIB [Suspect]
     Active Substance: CARFILZOMIB
     Dosage: 110 MILLIGRAM, 6 TIMES 1,2,8,9,15,16
     Route: 065
     Dates: start: 20230321, end: 20230405
  6. CARFILZOMIB [Suspect]
     Active Substance: CARFILZOMIB
     Dosage: 110 MILLIGRAM, 6 TIMES 1,2,8,9,15,16
     Route: 065
     Dates: start: 20230418, end: 20230503
  7. CARFILZOMIB [Suspect]
     Active Substance: CARFILZOMIB
     Dosage: 110 MILLIGRAM, 6 TIMES 1,2,8,9,15,16
     Route: 065
     Dates: start: 20230516, end: 20230606
  8. CARFILZOMIB [Suspect]
     Active Substance: CARFILZOMIB
     Dosage: 110 MILLIGRAM, 6 TIMES 1,2,8,9,15,16
     Route: 065
     Dates: start: 20230619, end: 20230707
  9. CARFILZOMIB [Suspect]
     Active Substance: CARFILZOMIB
     Dosage: 110 MILLIGRAM, 6 TIMES 1,2,8,9,15,16
     Route: 065
     Dates: start: 20230717, end: 20230801
  10. CARFILZOMIB [Suspect]
     Active Substance: CARFILZOMIB
     Dosage: 110 MILLIGRAM, 6 TIMES 1,2,8,9,15,16/ 8 TIMES 1,2,8,9,15,16
     Route: 065
     Dates: start: 20230814, end: 20230829
  11. CARFILZOMIB [Suspect]
     Active Substance: CARFILZOMIB
     Dosage: 110 MILLIGRAM, 6 TIMES 1,2,8,9,15,16
     Route: 065
     Dates: start: 20230911, end: 20230926
  12. CARFILZOMIB [Suspect]
     Active Substance: CARFILZOMIB
     Dosage: 156 MILLIGRAM
     Route: 065
  13. DEXAMETHASONE [Suspect]
     Active Substance: DEXAMETHASONE
     Indication: Plasma cell myeloma refractory
     Dosage: 20 MILLIGRAM, 6TIMES 1,2,8,9,15,16
     Route: 065
     Dates: start: 20221227, end: 20230112
  14. DEXAMETHASONE [Suspect]
     Active Substance: DEXAMETHASONE
     Indication: Prophylaxis
     Dosage: UNK, 6 TIMES 1,2,8,9,15,16
     Route: 065
     Dates: start: 20230120
  15. DEXAMETHASONE [Suspect]
     Active Substance: DEXAMETHASONE
     Dosage: 20 MILLIGRAM, 6TIMES 1,2,8,9,15,16
     Route: 065
     Dates: start: 20230124, end: 20230208
  16. DEXAMETHASONE [Suspect]
     Active Substance: DEXAMETHASONE
     Dosage: 20 MILLIGRAM, 6 TIMES 1,2,8,9,15,16
     Route: 065
     Dates: start: 20230221, end: 20230308
  17. DEXAMETHASONE [Suspect]
     Active Substance: DEXAMETHASONE
     Dosage: 20 MILLIGRAM, 6 TIMES 1,2,8,9,15,16
     Route: 065
     Dates: start: 20230321, end: 20230405
  18. DEXAMETHASONE [Suspect]
     Active Substance: DEXAMETHASONE
     Dosage: 20 MILLIGRAM, 6 TIMES 1,2,8,9,15,16
     Route: 065
     Dates: start: 20230418, end: 20230503
  19. DEXAMETHASONE [Suspect]
     Active Substance: DEXAMETHASONE
     Dosage: 20 MILLIGRAM, 6 TIMES 1,2,8,9,15,16
     Route: 065
     Dates: start: 20230516, end: 20230606
  20. DEXAMETHASONE [Suspect]
     Active Substance: DEXAMETHASONE
     Dosage: 20 MILLIGRAM, 8 TIMES 1,2,8,9,15,16,22,23
     Route: 065
     Dates: start: 20230619, end: 20230711
  21. DEXAMETHASONE [Suspect]
     Active Substance: DEXAMETHASONE
     Dosage: 20 MILLIGRAM, 8 TIMES 1,2,8,9,15,16,22,23
     Route: 065
     Dates: start: 20230717, end: 20230808
  22. DEXAMETHASONE [Suspect]
     Active Substance: DEXAMETHASONE
     Dosage: 20 MILLIGRAM, 8 TIMES 1,2,8,9,15,16,22,23
     Route: 065
     Dates: start: 20230814, end: 20230905
  23. DEXAMETHASONE [Suspect]
     Active Substance: DEXAMETHASONE
     Dosage: 20 MILLIGRAM, 6ID EVERY 4 HOURS
     Route: 065
     Dates: start: 20230911, end: 20230926
  24. DEXAMETHASONE [Suspect]
     Active Substance: DEXAMETHASONE
     Dosage: 1920 MILLIGRAM
     Route: 065
  25. ISATUXIMAB [Suspect]
     Active Substance: ISATUXIMAB
     Indication: Plasma cell myeloma refractory
     Dosage: 800 MILLIGRAM, QWK
     Route: 065
     Dates: start: 20221227, end: 20230119
  26. ISATUXIMAB [Suspect]
     Active Substance: ISATUXIMAB
     Dosage: 1600 MILLIGRAM (800 MG, BIW)
     Route: 065
     Dates: start: 20230124, end: 20230207
  27. ISATUXIMAB [Suspect]
     Active Substance: ISATUXIMAB
     Dosage: 800 MILLIGRAM, Q2WK
     Route: 065
     Dates: start: 20230221, end: 20230307
  28. ISATUXIMAB [Suspect]
     Active Substance: ISATUXIMAB
     Dosage: 1600 MILLIGRAM (800 MG, BIW)
     Route: 065
     Dates: start: 20230321, end: 20230404
  29. ISATUXIMAB [Suspect]
     Active Substance: ISATUXIMAB
     Dosage: 800 MILLIGRAM, Q2WK
     Route: 065
     Dates: start: 20230418, end: 20230502
  30. ISATUXIMAB [Suspect]
     Active Substance: ISATUXIMAB
     Dosage: 1600 MILLIGRAM (800 MG, BIW)
     Route: 065
     Dates: start: 20230516, end: 20230605
  31. ISATUXIMAB [Suspect]
     Active Substance: ISATUXIMAB
     Dosage: 1600 MILLIGRAM (800 MG, BIW)
     Route: 065
     Dates: start: 20230619, end: 20230703
  32. ISATUXIMAB [Suspect]
     Active Substance: ISATUXIMAB
     Dosage: 1600 MILLIGRAM (800 MG, BIW)
     Route: 065
     Dates: start: 20230717, end: 20230731
  33. ISATUXIMAB [Suspect]
     Active Substance: ISATUXIMAB
     Dosage: 1600 MILLIGRAM (800 MG, BIW)
     Route: 065
     Dates: start: 20230814, end: 20230828
  34. ISATUXIMAB [Suspect]
     Active Substance: ISATUXIMAB
     Dosage: 1600 MILLIGRAM (800 MG, BIW)
     Route: 065
     Dates: start: 20230911
  35. PREGABALIN [Concomitant]
     Active Substance: PREGABALIN
     Dosage: UNK
     Dates: start: 20220613, end: 2023
  36. LERCANIDIPINE [Concomitant]
     Active Substance: LERCANIDIPINE
     Dosage: UNK
  37. EMPAGLIFLOZIN [Concomitant]
     Active Substance: EMPAGLIFLOZIN
     Dosage: UNK
     Dates: start: 2023, end: 20231007
  38. MONTELUKAST [Concomitant]
     Active Substance: MONTELUKAST SODIUM
     Indication: Prophylaxis
     Dosage: UNK, 6 TIMS 1,2,8,9,15,16
     Route: 065
     Dates: start: 20221227
  39. COBALAMIN [Concomitant]
     Active Substance: COBALAMIN
     Indication: Vitamin B12 deficiency
     Dosage: UNK
     Dates: start: 2023
  40. CHOLECALCIFEROL [Concomitant]
     Active Substance: CHOLECALCIFEROL
     Dosage: UNK
  41. MOXONIDINE [Concomitant]
     Active Substance: MOXONIDINE
     Dosage: UNK
  42. BISOPROLOL [Concomitant]
     Active Substance: BISOPROLOL\BISOPROLOL FUMARATE
     Dosage: UNK
  43. LENALIDOMIDE [Concomitant]
     Active Substance: LENALIDOMIDE
     Dosage: UNK
     Route: 065
     Dates: start: 202301, end: 20230310
  44. POTASSIUM IODIDE [Concomitant]
     Active Substance: POTASSIUM IODIDE
     Dosage: UNK
     Dates: end: 2023
  45. ASPIRIN [Concomitant]
     Active Substance: ASPIRIN
     Dosage: UNK
     Dates: start: 2017, end: 2023
  46. TELMISARTAN [Concomitant]
     Active Substance: TELMISARTAN
     Dosage: UNK
  47. SODIUM BICARBONATE [Concomitant]
     Active Substance: SODIUM BICARBONATE
     Dosage: UNK
     Dates: end: 2023
  48. CLEMASTINE [Concomitant]
     Active Substance: CLEMASTINE
     Indication: Prophylaxis
     Dosage: UNK, 2 TIMES 1,15
     Dates: start: 20221227
  49. INDAPAMIDE [Concomitant]
     Active Substance: INDAPAMIDE
     Dosage: UNK
  50. CLONIDINE [Concomitant]
     Active Substance: CLONIDINE
     Indication: Hypertension
     Dosage: UNK
     Dates: start: 2023, end: 20231007
  51. XARELTO [Concomitant]
     Active Substance: RIVAROXABAN
     Indication: Hypertension
     Dosage: UNK
     Dates: end: 2023
  52. CEFTRIAXONE SODIUM [Concomitant]
     Active Substance: CEFTRIAXONE SODIUM
     Indication: Adverse event
     Dosage: UNK, START DATE: 07-OCT-2023; STOP DATE: OCT-2023
     Dates: start: 20231007, end: 202310
  53. IPRATROPIUM [Concomitant]
     Active Substance: IPRATROPIUM
     Dosage: UNK, START DATE: 07-OCT-2023; STOP DATE: ??-???-2023
     Route: 065
     Dates: start: 20231007, end: 2023
  54. METAMIZOLE [Concomitant]
     Active Substance: METAMIZOLE
     Indication: Arthritis
     Dosage: UNK
     Route: 065
     Dates: start: 2023
  55. FOLIC ACID [Concomitant]
     Active Substance: FOLIC ACID
     Dosage: UNK
     Dates: start: 2023
  56. INDOMETHACIN [Concomitant]
     Active Substance: INDOMETHACIN
     Indication: Arthritis
     Dosage: UNK (START DATE: ??-OCT-2023, STOP DATE: 2023)
     Route: 065
     Dates: start: 202310, end: 2023

REACTIONS (11)
  - Cerebellar stroke [Recovered/Resolved with Sequelae]
  - Thrombocytopenia [Recovered/Resolved]
  - Thrombocytopenia [Recovered/Resolved]
  - Thrombocytopenia [Recovered/Resolved]
  - Thrombocytopenia [Recovered/Resolved]
  - Epilepsy [Recovered/Resolved]
  - Hemiparesis [Not Recovered/Not Resolved]
  - Hyperkalaemia [Recovered/Resolved]
  - Anaemia [Recovered/Resolved]
  - Respiratory tract infection [Recovered/Resolved]
  - Urinary tract infection [Recovered/Resolved]

NARRATIVE: CASE EVENT DATE: 20230228
